FAERS Safety Report 8593822-7 (Version None)
Quarter: 2012Q3

REPORT INFORMATION
  Report Type: 
  Country: None (occurrence: None)
  Receive Date: 20120814
  Receipt Date: 20120803
  Transmission Date: 20120928
  Serious: No
  Sender: FDA-Public Use
  Company Number: US-ASTRAZENECA-2012SE55188

PATIENT
  Age: 79 Year
  Sex: Female

DRUGS (1)
  1. OMEPRAZOLE [Suspect]
     Route: 048
     Dates: start: 20100101

REACTIONS (4)
  - THROAT IRRITATION [None]
  - DRUG INEFFECTIVE [None]
  - GLOSSODYNIA [None]
  - SPEECH DISORDER [None]
